FAERS Safety Report 16387237 (Version 1)
Quarter: 2019Q2

REPORT INFORMATION
  Report Type: Spontaneous
  Country: DE (occurrence: DE)
  Receive Date: 20190604
  Receipt Date: 20190604
  Transmission Date: 20190711
  Serious: Yes (Hospitalization)
  Sender: FDA-Public Use
  Company Number: DE-009507513-1906DEU000241

PATIENT
  Age: 38 Year
  Sex: Female

DRUGS (5)
  1. ORGALUTRAN [Suspect]
     Active Substance: GANIRELIX ACETATE
     Indication: ASSISTED REPRODUCTIVE TECHNOLOGY
     Dosage: 0.25 MG, DAILY (1 IN 1 D)
     Route: 065
     Dates: start: 20190426, end: 20190501
  2. MENOGON [Suspect]
     Active Substance: MENOTROPINS
     Indication: ASSISTED REPRODUCTIVE TECHNOLOGY
     Dosage: 225 IU, DAILY (1 IN 1 D)
     Route: 065
     Dates: start: 20190426, end: 20190501
  3. OVITRELLE [Suspect]
     Active Substance: CHORIOGONADOTROPIN ALFA
     Indication: ASSISTED REPRODUCTIVE TECHNOLOGY
     Dosage: 250 UG, DAILY
     Route: 065
     Dates: start: 20190502
  4. MENOGON [Suspect]
     Active Substance: MENOTROPINS
     Dosage: 300 IU, DAILY (1 IN 1 D)
     Route: 065
     Dates: start: 20190422, end: 20190425
  5. PROGESTERONE. [Suspect]
     Active Substance: PROGESTERONE
     Indication: ASSISTED REPRODUCTIVE TECHNOLOGY
     Dosage: 600 MG, DAILY (1 IN 1 D)
     Route: 065
     Dates: start: 20190505

REACTIONS (1)
  - Salpingo-oophoritis [Unknown]

NARRATIVE: CASE EVENT DATE: 20190508
